FAERS Safety Report 8830075 (Version 2)
Quarter: 2012Q4

REPORT INFORMATION
  Report Type: 
  Country: US (occurrence: US)
  Receive Date: 20121008
  Receipt Date: 20121011
  Transmission Date: 20130627
  Serious: Yes (Death)
  Sender: FDA-Public Use
  Company Number: US-PFIZER INC-2012243826

PATIENT
  Age: 55 Year
  Sex: Male

DRUGS (1)
  1. TORISEL [Suspect]
     Indication: RENAL CANCER
     Dosage: 25 mg, UNK
     Dates: start: 20120726, end: 20120913

REACTIONS (2)
  - Disease progression [Fatal]
  - Renal cancer [Fatal]
